FAERS Safety Report 8939307 (Version 3)
Quarter: 2013Q1

REPORT INFORMATION
  Report Type: Spontaneous
  Country: US (occurrence: US)
  Receive Date: 20121203
  Receipt Date: 20130227
  Transmission Date: 20140127
  Serious: Yes (Other)
  Sender: FDA-Public Use
  Company Number: US-PFIZER INC-2012291571

PATIENT
  Age: 79 Year
  Sex: Male
  Weight: 86.62 kg

DRUGS (24)
  1. REVATIO [Suspect]
     Indication: PULMONARY HYPERTENSION
     Dosage: 20 MG, 3X/DAY
     Route: 048
     Dates: start: 201203
  2. MODAFINIL [Concomitant]
     Indication: DEPRESSION
     Dosage: 200 MG, 1X/DAY
  3. CITALOPRAM [Concomitant]
     Indication: DEPRESSION
     Dosage: ONE AND A HALF TABLET OF 20 MG DAILY
  4. BUPROPION [Concomitant]
     Indication: DEPRESSION
     Dosage: 150 MG, 1X/DAY
  5. ASPIRIN [Concomitant]
     Indication: CARDIAC DISORDER
     Dosage: 81 MG, 1X/DAY
  6. ZANTAC [Concomitant]
     Indication: GASTROINTESTINAL DISORDER
     Dosage: 300 MG, 1X/DAY
  7. ZANTAC [Concomitant]
     Indication: GASTROOESOPHAGEAL REFLUX DISEASE
  8. ZANTAC [Concomitant]
     Indication: ABDOMINAL PAIN
  9. PANTOPRAZOLE [Concomitant]
     Indication: GASTROINTESTINAL DISORDER
     Dosage: 40 MG, 2X/DAY
  10. PANTOPRAZOLE [Concomitant]
     Indication: GASTROOESOPHAGEAL REFLUX DISEASE
  11. PANTOPRAZOLE [Concomitant]
     Indication: ABDOMINAL PAIN
  12. L-THYROXIN [Concomitant]
     Indication: BLOOD THYROID STIMULATING HORMONE INCREASED
     Dosage: 2 UG, 1X/DAY
  13. LOVASTATIN [Concomitant]
     Indication: BLOOD CHOLESTEROL ABNORMAL
     Dosage: 5 MG, 1X/DAY
  14. LOVASTATIN [Concomitant]
     Indication: BLOOD TRIGLYCERIDES ABNORMAL
  15. GLIPIZIDE [Concomitant]
     Indication: TYPE 2 DIABETES MELLITUS
     Dosage: 10 MG, 2X/DAY
  16. LANTUS [Concomitant]
     Indication: TYPE 2 DIABETES MELLITUS
     Dosage: 50 IU, 1X/DAY
  17. FINASTERIDE [Concomitant]
     Dosage: 5 MG, 1X/DAY
  18. TAMSULOSIN [Concomitant]
     Dosage: 0.4 MG, 1X/DAY
  19. FOLIC ACID [Concomitant]
     Dosage: UNK, 1X/DAY
  20. IRON [Concomitant]
     Dosage: 65 MG, 1X/DAY
  21. TRACLEER [Concomitant]
     Indication: PULMONARY HYPERTENSION
     Dosage: 125 MG, 2X/DAY
  22. VITAMIN D3 [Concomitant]
     Dosage: ONE CAPSULE DAILY
  23. LASIX [Concomitant]
     Dosage: UNK
  24. ALDACTONE [Concomitant]
     Dosage: UNK

REACTIONS (1)
  - Oedema peripheral [Recovered/Resolved]
